FAERS Safety Report 6283911-4 (Version None)
Quarter: 2009Q3

REPORT INFORMATION
  Report Type: 
  Country: None (occurrence: None)
  Receive Date: 20090722
  Receipt Date: 20090722
  Transmission Date: 20100115
  Serious: Yes (Other)
  Sender: FDA-Public Use
  Company Number: None

PATIENT
  Sex: Female
  Weight: 53.978 kg

DRUGS (1)
  1. ORENCIA [Suspect]
     Indication: RHEUMATOID ARTHRITIS
     Dosage: ONCE A MONTH IV DRIP
     Route: 041
     Dates: start: 20090325, end: 20090525

REACTIONS (7)
  - ALOPECIA [None]
  - BREAST ENLARGEMENT [None]
  - FEELING HOT [None]
  - HYPERHIDROSIS [None]
  - MENSTRUATION IRREGULAR [None]
  - PARAESTHESIA [None]
  - SENSORY DISTURBANCE [None]
